FAERS Safety Report 7972920-2 (Version None)
Quarter: 2011Q4

REPORT INFORMATION
  Report Type: 
  Country: None (occurrence: None)
  Receive Date: 20111213
  Receipt Date: 20110110
  Transmission Date: 20120403
  Serious: No
  Sender: FDA-Public Use
  Company Number: US-MYLANLABS-2011S1000872

PATIENT
  Age: 76 Year
  Sex: Female
  Weight: 70.31 kg

DRUGS (8)
  1. CHLORTHALIDONE [Concomitant]
     Indication: BLOOD PRESSURE INCREASED
  2. FOLTX [Concomitant]
  3. POTASSIUM CHLORIDE EXTENDED RELEASE TABLETS [Concomitant]
  4. ASPIRIN [Concomitant]
  5. LOZAR [Concomitant]
     Indication: BLOOD PRESSURE INCREASED
  6. CHOLESTEROL MEDICATION [Concomitant]
     Indication: BLOOD CHOLESTEROL INCREASED
     Dosage: CREVASTATIN PER PATIENT'S SPELLING
  7. FLURAZEPAM HYDROCHLORIDE [Suspect]
     Indication: INSOMNIA
     Route: 048
  8. ATENOLOL [Concomitant]
     Indication: BLOOD PRESSURE INCREASED

REACTIONS (3)
  - DRUG EFFECT DECREASED [None]
  - WRONG TECHNIQUE IN DRUG USAGE PROCESS [None]
  - INSOMNIA [None]
